FAERS Safety Report 19481845 (Version 1)
Quarter: 2021Q2

REPORT INFORMATION
  Report Type: Spontaneous
  Country: US (occurrence: US)
  Receive Date: 20210630
  Receipt Date: 20210630
  Transmission Date: 20210717
  Serious: No
  Sender: FDA-Public Use
  Company Number: None

PATIENT
  Sex: Female

DRUGS (1)
  1. AIMOVIG [Suspect]
     Active Substance: ERENUMAB-AOOE
     Indication: MIGRAINE
     Dosage: OTHER FREQUENCY:Q  28 DAYS;?
     Route: 058
     Dates: start: 20210110

REACTIONS (2)
  - Therapeutic product effect decreased [None]
  - Migraine [None]
